FAERS Safety Report 4446964-1 (Version None)
Quarter: 2004Q3

REPORT INFORMATION
  Report Type: 
  Country: None (occurrence: None)
  Receive Date: 20040813
  Receipt Date: 20040619
  Transmission Date: 20050211
  Serious: No
  Sender: FDA-Public Use
  Company Number: S04-USA-03721-01

PATIENT
  Age: 85 Year
  Sex: Female

DRUGS (8)
  1. MEMANTINE HCL [Suspect]
     Indication: DEMENTIA ALZHEIMER'S TYPE
     Dosage: 10 MG BID PO
     Route: 048
     Dates: start: 20030922
  2. PREMARIN [Concomitant]
  3. SYNTHROID [Concomitant]
  4. ZOLOFT [Concomitant]
  5. MOBIC [Concomitant]
  6. GLUCOSAMINE [Concomitant]
  7. ARICEPT [Concomitant]
  8. ZYPREXA [Concomitant]

REACTIONS (1)
  - PRURITUS GENERALISED [None]
